FAERS Safety Report 8366655-4 (Version None)
Quarter: 2012Q1

REPORT INFORMATION
  Report Type: 
  Country: None (occurrence: None)
  Receive Date: 20120323
  Receipt Date: 20110428
  Transmission Date: 20120608
  Serious: Yes (Hospitalization)
  Sender: FDA-Public Use
  Company Number: 163-21880-11041195

PATIENT
  Age: 77 Year
  Sex: Female

DRUGS (4)
  1. REVLIMID [Suspect]
     Indication: MULTIPLE MYELOMA
     Dosage: 10 MG, 21, PO
     Route: 048
     Dates: start: 20101203, end: 20110301
  2. ISOSORBIDE DINITRATE (ISOSORBIDE DINITRATE) (UNKNOWN) [Concomitant]
  3. LISINOPRIL [Concomitant]
  4. CITALOPRAM HYDROBROMIDE (CITALOPRAM HYDROBROMIDE) (UNKNOWN) [Concomitant]

REACTIONS (1)
  - ANAEMIA [None]
